FAERS Safety Report 4697247-6 (Version None)
Quarter: 2005Q2

REPORT INFORMATION
  Report Type: 
  Country: None (occurrence: None)
  Receive Date: 20050621
  Receipt Date: 20050621
  Transmission Date: 20051028
  Serious: Yes (Hospitalization)
  Sender: FDA-Public Use
  Company Number: None

PATIENT
  Age: 58 Year
  Sex: Male

DRUGS (8)
  1. CETUXIMAB [Suspect]
     Indication: ILL-DEFINED DISORDER
     Dosage: 250 MG/M2, IV
     Route: 042
     Dates: start: 20050525, end: 20050613
  2. DECADRON [Concomitant]
  3. BENADRYL [Concomitant]
  4. RANITIDINE [Concomitant]
  5. ANZEMET [Concomitant]
  6. PACLITAXEL [Concomitant]
  7. CARBOPLATIN [Concomitant]
  8. XRT [Concomitant]

REACTIONS (3)
  - NECROSIS [None]
  - RASH MACULO-PAPULAR [None]
  - SKIN EXFOLIATION [None]
